FAERS Safety Report 8316275 (Version 3)
Quarter: 2013Q2

REPORT INFORMATION
  Report Type: Spontaneous
  Country: None (occurrence: CA)
  Receive Date: 20111229
  Receipt Date: 20130513
  Transmission Date: 20140414
  Serious: Yes (Other)
  Sender: FDA-Public Use
  Company Number: CA-BAXTER-2011BH040448

PATIENT
  Age: 58 Year
  Sex: Male

DRUGS (3)
  1. GAMMAGARD LIQUID -IMMUNE GLOBULIN INTRAVENOUS (HUMAN), [IGIV] 10% [Suspect]
     Indication: PRODUCT USED FOR UNKNOWN INDICATION
     Route: 065
     Dates: start: 20110829, end: 20110829
  2. BENADRYL [Concomitant]
     Indication: PREMEDICATION
     Route: 042
  3. HYDROCORTISONE SODIUM SUCCINATE [Concomitant]
     Indication: PREMEDICATION
     Route: 042

REACTIONS (4)
  - Erythema [Unknown]
  - Feeling hot [Unknown]
  - Hypersensitivity [Unknown]
  - Rash [Unknown]
